FAERS Safety Report 8979246 (Version 1)
Quarter: 2012Q4

REPORT INFORMATION
  Report Type: 
  Country: US (occurrence: US)
  Receive Date: 20121221
  Receipt Date: 20121221
  Transmission Date: 20130627
  Serious: Yes (Other)
  Sender: FDA-Public Use
  Company Number: US-TEVA-377415USA

PATIENT
  Sex: Male

DRUGS (2)
  1. TREANDA [Suspect]
  2. RITUXAN [Suspect]

REACTIONS (2)
  - Pancreatitis acute [Unknown]
  - Disease progression [Unknown]
